FAERS Safety Report 5832614-6 (Version None)
Quarter: 2008Q3

REPORT INFORMATION
  Report Type: 
  Country: None (occurrence: None)
  Receive Date: 20080804
  Receipt Date: 20080724
  Transmission Date: 20090109
  Serious: Yes (Other)
  Sender: FDA-Public Use
  Company Number: PHNU2008DE01704

PATIENT
  Sex: Female

DRUGS (6)
  1. RASILEZ [Suspect]
     Indication: HYPERTENSION
     Dosage: 300 MG, QD
     Route: 048
     Dates: start: 20071203
  2. NITROGLYCERIN [Suspect]
     Indication: HYPERTENSION
     Dosage: 2 PUFFS
     Dates: start: 20080429, end: 20080429
  3. OLMESARTAN MEDOXOMIL [Concomitant]
     Indication: HYPERTENSION
     Dosage: 40 MG
     Route: 048
     Dates: start: 20061016
  4. EUTHYROX [Concomitant]
     Dosage: 1 DF, QD
     Route: 048
     Dates: start: 20051206
  5. TORSEMIDE [Concomitant]
     Indication: HYPERTENSION
     Dosage: PRN
     Route: 048
     Dates: start: 20080506
  6. ACETYLSALICYLIC ACID SRT [Concomitant]
     Dosage: 1 DF, QD
     Route: 048
     Dates: start: 20080630

REACTIONS (3)
  - CIRCULATORY COLLAPSE [None]
  - HYPERTENSION [None]
  - HYPOTENSION [None]
